FAERS Safety Report 11196306 (Version 1)
Quarter: 2015Q2

REPORT INFORMATION
  Report Type: Spontaneous
  Country: US (occurrence: US)
  Receive Date: 20150617
  Receipt Date: 20150617
  Transmission Date: 20150821
  Serious: Yes (Death, Hospitalization, Other)
  Sender: FDA-Public Use
  Company Number: US-UNITED THERAPEUTICS-UNT-2015-006566

PATIENT
  Age: 48 Year
  Sex: Male
  Weight: 73.47 kg

DRUGS (3)
  1. REMODULIN [Suspect]
     Active Substance: TREPROSTINIL
     Indication: PULMONARY ARTERIAL HYPERTENSION
     Dosage: 0.044 ?G/KG, CONTINUING
     Route: 058
     Dates: start: 20110907
  2. REMODULIN [Suspect]
     Active Substance: TREPROSTINIL
     Dosage: 0.025 ?G/KG, CONTINUING
     Route: 058
  3. OPSUMIT [Concomitant]
     Active Substance: MACITENTAN
     Indication: PRODUCT USED FOR UNKNOWN INDICATION

REACTIONS (13)
  - Myalgia [Unknown]
  - Infusion site erythema [Unknown]
  - Musculoskeletal stiffness [Unknown]
  - Lethargy [Unknown]
  - Vomiting [Unknown]
  - Myocardial infarction [Fatal]
  - Abdominal discomfort [Unknown]
  - Loss of consciousness [Unknown]
  - Migraine [Unknown]
  - Headache [Unknown]
  - Pyrexia [Unknown]
  - Infusion site pain [Unknown]
  - Hypotension [Unknown]

NARRATIVE: CASE EVENT DATE: 201506
